FAERS Safety Report 5949532-5 (Version None)
Quarter: 2008Q4

REPORT INFORMATION
  Report Type: 
  Country: None (occurrence: None)
  Receive Date: 20081112
  Receipt Date: 20081106
  Transmission Date: 20090506
  Serious: Yes (Death, Other)
  Sender: FDA-Public Use
  Company Number: PHBS2008JP06236

PATIENT
  Age: 34 Year
  Sex: Male

DRUGS (5)
  1. CYCLOSPORINE [Suspect]
     Indication: CORD BLOOD TRANSPLANT THERAPY
  2. METHOTREXATE [Suspect]
     Indication: CORD BLOOD TRANSPLANT THERAPY
  3. IRRADIATION [Concomitant]
     Indication: CORD BLOOD TRANSPLANT THERAPY
     Dosage: 12 GY
  4. CYTARABINE [Concomitant]
     Indication: CORD BLOOD TRANSPLANT THERAPY
     Dosage: 12 G/M2
  5. CYCLOPHOSPHAMIDE [Concomitant]
     Indication: CORD BLOOD TRANSPLANT THERAPY
     Dosage: 120 MG/KG

REACTIONS (15)
  - ACUTE GRAFT VERSUS HOST DISEASE IN SKIN [None]
  - BICYTOPENIA [None]
  - BONE MARROW FAILURE [None]
  - CHRONIC GRAFT VERSUS HOST DISEASE [None]
  - CORD BLOOD TRANSPLANT THERAPY [None]
  - HAEMOGLOBIN DECREASED [None]
  - HEPATOSPLENOMEGALY [None]
  - KARYOTYPE ANALYSIS ABNORMAL [None]
  - MALAISE [None]
  - MYELODYSPLASTIC SYNDROME [None]
  - MYELOFIBROSIS [None]
  - PANCYTOPENIA [None]
  - PLATELET COUNT DECREASED [None]
  - PYREXIA [None]
  - VENOOCCLUSIVE LIVER DISEASE [None]
